FAERS Safety Report 12372871 (Version 5)
Quarter: 2016Q3

REPORT INFORMATION
  Report Type: Spontaneous
  Country: US (occurrence: US)
  Receive Date: 20160516
  Receipt Date: 20160805
  Transmission Date: 20161109
  Serious: Yes (Other)
  Sender: FDA-Public Use
  Company Number: US-PFIZER INC-2016258669

PATIENT
  Age: 74 Year
  Sex: Male
  Weight: 82.55 kg

DRUGS (15)
  1. NEURONTIN [Suspect]
     Active Substance: GABAPENTIN
     Indication: DIABETIC NEUROPATHY
     Dosage: 300 MG, 4X/DAY
     Route: 048
  2. GABAPENTIN. [Suspect]
     Active Substance: GABAPENTIN
     Indication: DIABETIC NEUROPATHY
     Dosage: 300 MG, 4X/DAY
     Route: 048
  3. AMITRIPTYLINE [Concomitant]
     Active Substance: AMITRIPTYLINE
     Indication: DEPRESSION
  4. SIMVASTATIN. [Concomitant]
     Active Substance: SIMVASTATIN
     Indication: NEPHROPATHY
     Dosage: 40 MG, 1X/DAY
     Route: 048
  5. LORAZEPAM. [Concomitant]
     Active Substance: LORAZEPAM
     Indication: DIZZINESS
     Dosage: 0.5 MG, 4X/DAY
  6. STOOL SOFTENER [Concomitant]
     Active Substance: DOCUSATE CALCIUM
     Indication: MALAISE
     Dosage: 200 MG, DAILY (TWO IN THE MORNING AND TWO AT NIGHT)
     Route: 048
  7. LEVOTHYROXINE. [Concomitant]
     Active Substance: LEVOTHYROXINE
     Indication: HYPOTHYROIDISM
     Dosage: 100 UG, 1X/DAY
     Route: 048
  8. NEURONTIN [Suspect]
     Active Substance: GABAPENTIN
     Indication: NERVE INJURY
     Dosage: 1200 MG, DAILY (ONE IN THE MORNING, ONE AT NOON, AND TWO AT BEDTIME)
     Route: 048
  9. LORAZEPAM. [Concomitant]
     Active Substance: LORAZEPAM
     Indication: NERVE INJURY
     Dosage: 2 MG, DAILY (0.5 MG ONE IN THE MORNING, ONE AT NOON, TWO AT BEDTIME)
     Route: 048
  10. LORAZEPAM. [Concomitant]
     Active Substance: LORAZEPAM
     Indication: ANXIETY
  11. GLIMEPIRIDE. [Concomitant]
     Active Substance: GLIMEPIRIDE
     Indication: RENAL DISORDER
     Dosage: 0.5 MG, DAILY
     Route: 048
  12. ACETAMINOPHEN. [Concomitant]
     Active Substance: ACETAMINOPHEN
     Indication: RENAL PAIN
     Dosage: 2 DF, DAILY
     Route: 048
     Dates: start: 2012
  13. GLIMEPIRIDE. [Concomitant]
     Active Substance: GLIMEPIRIDE
     Indication: DIABETES MELLITUS
     Dosage: 1 MG, DAILY
  14. PROBIOTICS [Concomitant]
     Active Substance: PROBIOTICS NOS
     Dosage: 2 DF, DAILY
     Route: 048
     Dates: start: 2014
  15. AMITRIPTYLINE [Concomitant]
     Active Substance: AMITRIPTYLINE
     Indication: INSOMNIA
     Dosage: 100 MG, 1X/DAY (AT BEDTIME)
     Route: 048

REACTIONS (23)
  - Pain in extremity [Unknown]
  - Tuberculosis [Unknown]
  - Depression [Unknown]
  - Rash [Unknown]
  - Fatigue [Unknown]
  - Muscle fatigue [Unknown]
  - Suicidal ideation [Unknown]
  - Burning sensation [Unknown]
  - Suicidal behaviour [Unknown]
  - Dizziness [Unknown]
  - Overdose [Unknown]
  - Product use issue [Unknown]
  - Myalgia [Recovering/Resolving]
  - Affective disorder [Unknown]
  - Speech disorder [Unknown]
  - Pneumonia [Unknown]
  - Renal impairment [Unknown]
  - Peripheral swelling [Not Recovered/Not Resolved]
  - Diabetic neuropathy [Unknown]
  - Pyrexia [Unknown]
  - Lymphadenopathy [Unknown]
  - Infection [Unknown]
  - Condition aggravated [Unknown]
